FAERS Safety Report 10496578 (Version 2)
Quarter: 2014Q4

REPORT INFORMATION
  Report Type: Report from Study
  Country: US (occurrence: US)
  Receive Date: 20141005
  Receipt Date: 20141005
  Transmission Date: 20150528
  Serious: Yes (Other)
  Sender: FDA-Public Use
  Company Number: PHEH2013US023714

PATIENT
  Sex: Female

DRUGS (3)
  1. EXTAVIA [Suspect]
     Active Substance: INTERFERON BETA-1B
     Dosage: 0.25 MG, QOD
     Route: 058
     Dates: start: 20130512
  2. EXTAVIA [Suspect]
     Active Substance: INTERFERON BETA-1B
     Indication: MULTIPLE SCLEROSIS
     Dosage: UNK UKN, QOD
     Route: 058
     Dates: start: 20130404
  3. EXTAVIA [Suspect]
     Active Substance: INTERFERON BETA-1B
     Dosage: 0.25 MG, QOD
     Route: 058
     Dates: start: 20130414

REACTIONS (6)
  - Sarcoidosis [Not Recovered/Not Resolved]
  - Feeling cold [Recovered/Resolved]
  - Muscle spasms [Recovering/Resolving]
  - Restlessness [Recovered/Resolved]
  - Cardiac disorder [Not Recovered/Not Resolved]
  - Chills [Recovered/Resolved]
